FAERS Safety Report 7726946-4 (Version None)
Quarter: 2011Q3

REPORT INFORMATION
  Report Type: 
  Country: None (occurrence: None)
  Receive Date: 20110902
  Receipt Date: 20110824
  Transmission Date: 20111222
  Serious: Yes (Other)
  Sender: FDA-Public Use
  Company Number: US-JNJFOC-20110811069

PATIENT
  Sex: Female
  Weight: 53.52 kg

DRUGS (3)
  1. METHOTREXATE [Concomitant]
     Indication: RHEUMATOID ARTHRITIS
  2. SIMPONI [Suspect]
     Route: 058
     Dates: start: 20090101, end: 20090801
  3. SIMPONI [Suspect]
     Indication: RHEUMATOID ARTHRITIS
     Route: 058
     Dates: start: 20100801

REACTIONS (5)
  - DRUG DOSE OMISSION [None]
  - PREMATURE DELIVERY [None]
  - ATTENTION DEFICIT/HYPERACTIVITY DISORDER [None]
  - MATERNAL EXPOSURE DURING PREGNANCY [None]
  - DEVICE MALFUNCTION [None]
